FAERS Safety Report 8986642 (Version 1)
Quarter: 2012Q4

REPORT INFORMATION
  Report Type: Spontaneous
  Country: US (occurrence: None)
  Receive Date: 20121219
  Receipt Date: 20121219
  Transmission Date: 20130627
  Serious: Yes (Life-Threatening, Hospitalization)
  Sender: FDA-Public Use
  Company Number: None

PATIENT
  Age: 45 Year
  Sex: Male
  Weight: 68.95 kg

DRUGS (2)
  1. FLUOXETINE HCL [Suspect]
     Indication: DEPRESSION
     Dosage: 10 mg daily po
     Route: 048
     Dates: start: 20121128, end: 20121208
  2. FLUOXETINE HCL [Suspect]
     Indication: OBSESSIVE-COMPULSIVE DISORDER
     Dosage: 10 mg daily po
     Route: 048
     Dates: start: 20121128, end: 20121208

REACTIONS (10)
  - Agitation [None]
  - Tremor [None]
  - Hyperhidrosis [None]
  - Palpitations [None]
  - Pyrexia [None]
  - Convulsion [None]
  - Headache [None]
  - Hallucination [None]
  - Feeling abnormal [None]
  - Blood creatine phosphokinase increased [None]
